FAERS Safety Report 7971478-1 (Version None)
Quarter: 2011Q4

REPORT INFORMATION
  Report Type: 
  Country: None (occurrence: None)
  Receive Date: 20111212
  Receipt Date: 20111206
  Transmission Date: 20120403
  Serious: Yes (Other)
  Sender: FDA-Public Use
  Company Number: US-PFIZER INC-2011297660

PATIENT
  Sex: Male

DRUGS (2)
  1. CAVERJECT [Suspect]
     Dosage: UNK
     Dates: start: 20070101
  2. VASOTEC [Concomitant]
     Indication: HYPERTENSION
     Dosage: UNK

REACTIONS (4)
  - WRONG TECHNIQUE IN DRUG USAGE PROCESS [None]
  - DRUG INEFFECTIVE [None]
  - ERECTION INCREASED [None]
  - PAIN [None]
